FAERS Safety Report 10101608 (Version 1)
Quarter: 2014Q2

REPORT INFORMATION
  Report Type: Spontaneous
  Country: FR (occurrence: FR)
  Receive Date: 20140424
  Receipt Date: 20140424
  Transmission Date: 20141212
  Serious: Yes (Hospitalization, Other)
  Sender: FDA-Public Use
  Company Number: 2014SP000357

PATIENT
  Age: 46 Year
  Sex: Female
  Weight: 88 kg

DRUGS (7)
  1. METHOTREXATE [Suspect]
     Indication: ACUTE LYMPHOCYTIC LEUKAEMIA
     Dates: start: 20131128
  2. CYTARABINE [Suspect]
     Indication: ACUTE LYMPHOCYTIC LEUKAEMIA
     Route: 042
     Dates: start: 20131129, end: 20131130
  3. DEXAMETHASONE [Concomitant]
  4. TOBRAMYCIN [Concomitant]
  5. TASIGNA [Concomitant]
     Route: 048
     Dates: end: 20131204
  6. LEDERFOLINE [Concomitant]
     Dates: start: 201311
  7. NEULASTA [Concomitant]

REACTIONS (14)
  - Encephalitis [Recovering/Resolving]
  - Febrile bone marrow aplasia [Recovered/Resolved]
  - Neutropenia [Unknown]
  - Pyrexia [Recovered/Resolved]
  - Renal failure [Recovered/Resolved]
  - Breast inflammation [Unknown]
  - Pleural effusion [Unknown]
  - Cerebellar syndrome [Recovered/Resolved]
  - Petit mal epilepsy [Recovered/Resolved]
  - Hallucination [Recovered/Resolved]
  - Pain in extremity [Unknown]
  - Dysarthria [Recovered/Resolved]
  - Gait disturbance [Not Recovered/Not Resolved]
  - Drug intolerance [Unknown]
